FAERS Safety Report 5360656-6 (Version None)
Quarter: 2007Q2

REPORT INFORMATION
  Report Type: 
  Country: None (occurrence: None)
  Receive Date: 20070618
  Receipt Date: 20070611
  Transmission Date: 20071010
  Serious: Yes (Hospitalization)
  Sender: FDA-Public Use
  Company Number: DEWYE824411JUN07

PATIENT
  Sex: Male
  Weight: 74 kg

DRUGS (1)
  1. RAPAMUNE [Suspect]
     Indication: PROPHYLAXIS AGAINST TRANSPLANT REJECTION
     Route: 048
     Dates: start: 20061217, end: 20070312

REACTIONS (3)
  - CONDITION AGGRAVATED [None]
  - GLOMERULONEPHRITIS PROLIFERATIVE [None]
  - NEPHROSCLEROSIS [None]
